FAERS Safety Report 9985121 (Version 1)
Quarter: 2014Q1

REPORT INFORMATION
  Report Type: Report from Study
  Country: US (occurrence: US)
  Receive Date: 20140307
  Receipt Date: 20140307
  Transmission Date: 20141002
  Serious: No
  Sender: FDA-Public Use
  Company Number: US-ABBVIE-14P-163-1186701-00

PATIENT
  Age: 36 Year
  Sex: Male

DRUGS (3)
  1. HUMIRA [Suspect]
     Indication: CROHN^S DISEASE
     Dates: start: 20131030
  2. TRAMADOL [Concomitant]
     Indication: PAIN
     Dosage: 2 PILLS AS NEEDED, RARELY TAKES IT
  3. PREDNISONE [Concomitant]
     Indication: PRODUCT USED FOR UNKNOWN INDICATION
     Dosage: DECREASED BY HALF A PILL

REACTIONS (1)
  - Inappropriate schedule of drug administration [Not Recovered/Not Resolved]
